FAERS Safety Report 5566168-9 (Version None)
Quarter: 2007Q4

REPORT INFORMATION
  Report Type: 
  Country: None (occurrence: None)
  Receive Date: 20071217
  Receipt Date: 20071217
  Transmission Date: 20080405
  Serious: Yes (Hospitalization)
  Sender: FDA-Public Use
  Company Number: None

PATIENT
  Age: 63 Year
  Sex: Female
  Weight: 65.318 kg

DRUGS (13)
  1. CISPLATIN [Suspect]
     Indication: OESOPHAGEAL CARCINOMA
     Dosage: 25MG/M2
     Dates: start: 20071025
  2. CISPLATIN [Suspect]
     Indication: OESOPHAGEAL CARCINOMA
     Dosage: 25MG/M2
     Dates: start: 20071101
  3. CISPLATIN [Suspect]
     Indication: OESOPHAGEAL CARCINOMA
     Dosage: 25MG/M2
     Dates: start: 20071108
  4. CISPLATIN [Suspect]
     Indication: OESOPHAGEAL CARCINOMA
     Dosage: 25MG/M2
     Dates: start: 20071115
  5. CISPLATIN [Suspect]
     Indication: OESOPHAGEAL CARCINOMA
     Dosage: 25MG/M2
     Dates: start: 20071121
  6. CISPLATIN [Suspect]
     Indication: OESOPHAGEAL CARCINOMA
     Dosage: 25MG/M2
     Dates: start: 20071129
  7. CT-213 [Suspect]
     Dosage: 50MG/M2
     Dates: start: 20071025
  8. CT-213 [Suspect]
     Dosage: 50MG/M2
     Dates: start: 20071101
  9. CT-213 [Suspect]
     Dosage: 50MG/M2
     Dates: start: 20071108
  10. CT-213 [Suspect]
     Dosage: 50MG/M2
     Dates: start: 20071115
  11. CT-213 [Suspect]
     Dosage: 50MG/M2
     Dates: start: 20071121
  12. CT-213 [Suspect]
     Dosage: 50MG/M2
     Dates: start: 20071129
  13. RADIATION [Suspect]
     Dosage: DAILY (RADIATION HELD 12/5-12/7)
     Dates: start: 20071025, end: 20071210

REACTIONS (7)
  - DEHYDRATION [None]
  - DEPRESSED MOOD [None]
  - ELECTROLYTE IMBALANCE [None]
  - MOOD ALTERED [None]
  - NAUSEA [None]
  - OESOPHAGITIS [None]
  - ORAL INTAKE REDUCED [None]
